FAERS Safety Report 7162951-7 (Version None)
Quarter: 2010Q4

REPORT INFORMATION
  Report Type: 
  Country: None (occurrence: None)
  Receive Date: 20101215
  Receipt Date: 20100202
  Transmission Date: 20110411
  Serious: Yes (Other)
  Sender: FDA-Public Use
  Company Number: GB-PFIZER INC-2010014358

PATIENT
  Age: 54 Year
  Sex: Male

DRUGS (2)
  1. LYRICA [Suspect]
     Dosage: 300 MG, 2X/DAY
  2. WARFARIN [Concomitant]

REACTIONS (1)
  - PITUITARY-DEPENDENT CUSHING'S SYNDROME [None]
